FAERS Safety Report 7263856-3 (Version None)
Quarter: 2011Q1

REPORT INFORMATION
  Report Type: 
  Country: None (occurrence: None)
  Receive Date: 20110130
  Receipt Date: 20101216
  Transmission Date: 20110831
  Serious: No
  Sender: FDA-Public Use
  Company Number: US-ABBOTT-10P-163-0692293-00

PATIENT
  Sex: Female

DRUGS (3)
  1. HUMIRA [Suspect]
     Indication: CROHN'S DISEASE
     Dates: start: 20101101, end: 20101101
  2. HUMIRA [Suspect]
     Dates: start: 20101101
  3. HUMIRA [Suspect]
     Dates: start: 20101101, end: 20101101

REACTIONS (3)
  - HEADACHE [None]
  - LETHARGY [None]
  - DIZZINESS [None]
